FAERS Safety Report 5689151-1 (Version None)
Quarter: 2008Q1

REPORT INFORMATION
  Report Type: 
  Country: None (occurrence: None)
  Receive Date: 20080331
  Receipt Date: 19940330
  Transmission Date: 20080703
  Serious: Yes (Death)
  Sender: FDA-Public Use
  Company Number: IT-ROCHE-940700061001

PATIENT
  Age: 17 Year
  Sex: Male

DRUGS (1)
  1. ROCEPHIN [Suspect]
     Route: 030
     Dates: start: 19940321

REACTIONS (1)
  - DEATH [None]
